FAERS Safety Report 6983552-7 (Version None)
Quarter: 2010Q3

REPORT INFORMATION
  Report Type: 
  Country: None (occurrence: None)
  Receive Date: 20100914
  Receipt Date: 20080723
  Transmission Date: 20110219
  Serious: No
  Sender: FDA-Public Use
  Company Number: US-WYE-H05231108

PATIENT
  Age: 93 Year
  Sex: Female
  Weight: 59.02 kg

DRUGS (2)
  1. ADVIL LIQUI-GELS [Suspect]
     Indication: ARTHRITIS
     Route: 048
     Dates: start: 20080719
  2. ADVIL LIQUI-GELS [Suspect]
     Indication: PAIN

REACTIONS (1)
  - OTORRHOEA [None]
